FAERS Safety Report 5360532-9 (Version None)
Quarter: 2007Q2

REPORT INFORMATION
  Report Type: 
  Country: None (occurrence: None)
  Receive Date: 20070612
  Receipt Date: 20070604
  Transmission Date: 20071010
  Serious: Yes (Hospitalization)
  Sender: FDA-Public Use
  Company Number: 234112K07USA

PATIENT
  Age: 47 Year
  Sex: Female
  Weight: 134.2647 kg

DRUGS (10)
  1. REBIF [Suspect]
     Indication: MULTIPLE SCLEROSIS
     Dosage: 44 MCG, 3 IN 1 WEEKS, SUBCUTANEOUS
     Route: 058
     Dates: start: 20060722
  2. NEURONTIN [Concomitant]
  3. DARVOCET [Concomitant]
  4. BACLOFEN [Concomitant]
  5. METHADONE (METHADONE /00068901/) [Concomitant]
  6. COZAAR [Concomitant]
  7. LOVASTATIN [Concomitant]
  8. SYNTHROID [Concomitant]
  9. METFORMIN [Concomitant]
  10. COUMADIN [Concomitant]

REACTIONS (4)
  - DEEP VEIN THROMBOSIS [None]
  - FALL [None]
  - JOINT INJURY [None]
  - ROTATOR CUFF SYNDROME [None]
